FAERS Safety Report 6086450-9 (Version None)
Quarter: 2009Q1

REPORT INFORMATION
  Report Type: 
  Country: None (occurrence: None)
  Receive Date: 20090210
  Receipt Date: 20090203
  Transmission Date: 20090719
  Serious: Yes (Death, Hospitalization, Disabling, Other)
  Sender: FDA-Public Use
  Company Number: WAES 0807USA00740

PATIENT
  Age: 72 Year
  Sex: Male

DRUGS (6)
  1. ZOCOR [Suspect]
     Indication: ACUTE CORONARY SYNDROME
     Dosage: 40 MG/DAILY PO
     Route: 048
     Dates: start: 20060727
  2. TAB PLACEBO (UNSPECIFIED) [Suspect]
     Indication: ACUTE CORONARY SYNDROME
     Dosage: PO
     Route: 048
     Dates: start: 20060727
  3. GLUCOPHAGE [Concomitant]
  4. BISOPROLOL [Concomitant]
  5. ENALAPRIL MALEATE AND HYDROCHLOROTHIAZIDE [Concomitant]
  6. FELODIPINE [Concomitant]

REACTIONS (8)
  - ALANINE AMINOTRANSFERASE INCREASED [None]
  - ASPARTATE AMINOTRANSFERASE INCREASED [None]
  - BLOOD ALKALINE PHOSPHATASE INCREASED [None]
  - INFECTION [None]
  - METASTASES TO LIVER [None]
  - METASTASES TO LUNG [None]
  - PNEUMONIA [None]
  - WEIGHT DECREASED [None]
